FAERS Safety Report 21636903 (Version 1)
Quarter: 2022Q4

REPORT INFORMATION
  Report Type: Spontaneous
  Country: TR (occurrence: TR)
  Receive Date: 20221124
  Receipt Date: 20221124
  Transmission Date: 20230112
  Serious: Yes (Other)
  Sender: FDA-Public Use
  Company Number: TR-SUN PHARMACEUTICAL INDUSTRIES LTD-2022RR-365490

PATIENT
  Age: 39 Year
  Sex: Female

DRUGS (1)
  1. VENLAFAXINE [Suspect]
     Active Substance: VENLAFAXINE HYDROCHLORIDE
     Indication: Depressive symptom
     Dosage: 75 MILLIGRAM, DAILY, FOR THE PAST 4 MONTHS
     Route: 065

REACTIONS (5)
  - Asthenia [Unknown]
  - Somnolence [Unknown]
  - Female orgasmic disorder [Recovered/Resolved]
  - Female sexual arousal disorder [Recovered/Resolved]
  - Libido decreased [Recovered/Resolved]
